FAERS Safety Report 12604787 (Version 1)
Quarter: 2016Q3

REPORT INFORMATION
  Report Type: Spontaneous
  Country: US (occurrence: US)
  Receive Date: 20160728
  Receipt Date: 20160728
  Transmission Date: 20161109
  Serious: Yes (Hospitalization)
  Sender: FDA-Public Use
  Company Number: US-B.I. PHARMACEUTICALS,INC./RIDGEFIELD-2016-BI-49546YA

PATIENT
  Sex: Male
  Weight: 186 kg

DRUGS (4)
  1. TAMSULOSINA [Suspect]
     Active Substance: TAMSULOSIN HYDROCHLORIDE
     Indication: PRODUCT USED FOR UNKNOWN INDICATION
     Dosage: FORMULATION:MODIFIED-RELEASE CAPSULE,HARD; STRENGTH: 0.4MG;DAILY DOSE:2 DF,30 MINUTES SAME MEAL EACH
     Route: 048
  2. TOVIAZ [Suspect]
     Active Substance: FESOTERODINE FUMARATE
     Dosage: 8 MG
     Route: 048
     Dates: start: 2013, end: 2014
  3. TOVIAZ [Suspect]
     Active Substance: FESOTERODINE FUMARATE
     Indication: INCONTINENCE
     Dosage: 4 MG
     Route: 065
  4. TOVIAZ [Suspect]
     Active Substance: FESOTERODINE FUMARATE
     Route: 065
     Dates: start: 20150630, end: 20150803

REACTIONS (3)
  - Cellulitis [Not Recovered/Not Resolved]
  - Drug ineffective [Unknown]
  - Dry mouth [Recovered/Resolved]
